FAERS Safety Report 7005496-7 (Version None)
Quarter: 2010Q3

REPORT INFORMATION
  Report Type: 
  Country: None (occurrence: None)
  Receive Date: 20100917
  Receipt Date: 20100908
  Transmission Date: 20110219
  Serious: Yes (Other)
  Sender: FDA-Public Use
  Company Number: 2010090038

PATIENT

DRUGS (2)
  1. LUPRAC [Suspect]
     Dosage: 0.71MG/KG/DAY, 0.91MG/KG/DAY, 0.88MG/KG/DAY
  2. ENALAPRIL (ENAPRIL) [Suspect]

REACTIONS (2)
  - HYPERKALAEMIA [None]
  - NO THERAPEUTIC RESPONSE [None]
